FAERS Safety Report 17392506 (Version 13)
Quarter: 2022Q3

REPORT INFORMATION
  Report Type: Other
  Country: CA (occurrence: None)
  Receive Date: 20200207
  Receipt Date: 20220729
  Transmission Date: 20221026
  Serious: Yes (Other)
  Sender: FDA-Public Use
  Company Number: CA-ROCHE-2515343

PATIENT
  Age: 41 Year
  Sex: Female

DRUGS (3)
  1. OCREVUS [Suspect]
     Active Substance: OCRELIZUMAB
     Indication: Relapsing-remitting multiple sclerosis
     Dosage: 300 MG AT DAY 0 AND 14, CONCENTRATE FOR INTRAVENOUS INFUSION LIQUID
     Route: 042
     Dates: start: 20191227
  2. OCREVUS [Suspect]
     Active Substance: OCRELIZUMAB
     Indication: Multiple sclerosis
     Route: 042
  3. LORAZEPAM [Concomitant]
     Active Substance: LORAZEPAM

REACTIONS (24)
  - Pneumonia [Recovering/Resolving]
  - Stress [Not Recovered/Not Resolved]
  - Sleep disorder [Not Recovered/Not Resolved]
  - Hypoaesthesia [Recovered/Resolved]
  - Rash erythematous [Recovered/Resolved]
  - Fatigue [Unknown]
  - Infusion related reaction [Unknown]
  - Eye pain [Recovered/Resolved]
  - Hypotension [Unknown]
  - Cough [Unknown]
  - Asthenia [Unknown]
  - Rhinorrhoea [Unknown]
  - Eye haemorrhage [Unknown]
  - Back pain [Unknown]
  - Candida infection [Unknown]
  - Urinary tract infection [Unknown]
  - Ear disorder [Recovered/Resolved]
  - Nasopharyngitis [Recovered/Resolved]
  - Insomnia [Not Recovered/Not Resolved]
  - Emotional disorder [Not Recovered/Not Resolved]
  - Paranoia [Unknown]
  - Feeling abnormal [Not Recovered/Not Resolved]
  - Dysarthria [Not Recovered/Not Resolved]
  - Headache [Unknown]

NARRATIVE: CASE EVENT DATE: 20191227
